FAERS Safety Report 17259390 (Version 2)
Quarter: 2020Q1

REPORT INFORMATION
  Report Type: Report from Study
  Country: US (occurrence: US)
  Receive Date: 20200110
  Receipt Date: 20200122
  Transmission Date: 20200409
  Serious: Yes (Hospitalization)
  Sender: FDA-Public Use
  Company Number: US-ACTELION-A-NJ2019-199371

PATIENT
  Age: 74 Year
  Sex: Female
  Weight: 98.87 kg

DRUGS (4)
  1. ELIQUIS [Concomitant]
     Active Substance: APIXABAN
  2. UPTRAVI [Suspect]
     Active Substance: SELEXIPAG
     Indication: PULMONARY ARTERIAL HYPERTENSION
     Dosage: 200 MCG, BID
     Route: 048
     Dates: end: 20191202
  3. ADEMPAS [Concomitant]
     Active Substance: RIOCIGUAT
  4. OPSUMIT [Suspect]
     Active Substance: MACITENTAN
     Indication: PULMONARY ARTERIAL HYPERTENSION
     Dosage: 10 MG, QD
     Route: 048

REACTIONS (12)
  - Fall [Unknown]
  - Nausea [Unknown]
  - Syncope [Unknown]
  - Hospitalisation [Unknown]
  - Back pain [Unknown]
  - Peripheral swelling [Unknown]
  - Arthralgia [Unknown]
  - Abdominal pain [Unknown]
  - Diarrhoea [Unknown]
  - Concomitant disease aggravated [Unknown]
  - Decreased appetite [Unknown]
  - Lung disorder [Unknown]

NARRATIVE: CASE EVENT DATE: 20191203
